FAERS Safety Report 8145679-6 (Version None)
Quarter: 2012Q1

REPORT INFORMATION
  Report Type: 
  Country: None (occurrence: None)
  Receive Date: 20120217
  Receipt Date: 20110307
  Transmission Date: 20120608
  Serious: No
  Sender: FDA-Public Use
  Company Number: US-ALLERGAN-1103188US

PATIENT
  Age: 16 Year
  Sex: Male

DRUGS (2)
  1. TAZORAC [Suspect]
     Indication: ACNE
     Dosage: 1 DF, QHS
     Route: 061
  2. TAZORAC [Suspect]
     Indication: ACNE
     Dosage: 1 DF, QHS
     Route: 061

REACTIONS (5)
  - ERYTHEMA [None]
  - BURNING SENSATION [None]
  - SKIN EXFOLIATION [None]
  - SKIN BURNING SENSATION [None]
  - PAIN [None]
